FAERS Safety Report 4334986-0 (Version None)
Quarter: 2004Q2

REPORT INFORMATION
  Report Type: 
  Country: None (occurrence: None)
  Receive Date: 20040408
  Receipt Date: 20040311
  Transmission Date: 20050107
  Serious: Yes (Hospitalization)
  Sender: FDA-Public Use
  Company Number: GB-ROCHE-361435

PATIENT
  Age: 53 Year
  Sex: Male
  Weight: 61.7 kg

DRUGS (9)
  1. CAPECITABINE [Suspect]
     Dosage: ACTUAL DOSE:1650 MG. ADMINISTERED FOR 21 DAYS, FOLLOWED BY 7 DAYS REST.
     Route: 048
     Dates: start: 20040115, end: 20040122
  2. GEMCITABINE [Suspect]
     Dosage: ACTUAL DOSE:1950 MG. TREATMENT RECEIVED ON DAY 1, 8 AND 15
     Route: 042
     Dates: start: 20040115, end: 20040115
  3. FENTANYL [Concomitant]
     Indication: PAIN
     Route: 062
     Dates: start: 20031215
  4. OXYNORM [Concomitant]
     Indication: PAIN
     Dates: start: 20031215
  5. METOCLOPRAMIDE [Concomitant]
     Indication: NAUSEA
     Dates: start: 20031215
  6. DICLOFENAC SODIUM [Concomitant]
     Indication: PAIN
     Dates: start: 20031215
  7. CITALOPRAM [Concomitant]
     Indication: DEPRESSION
     Dates: start: 20031215
  8. LAXOBERAL [Concomitant]
     Indication: CONSTIPATION
     Dates: start: 20031215
  9. PANTOPRAZOLE [Concomitant]
     Dates: start: 20031215

REACTIONS (1)
  - HERNIA [None]
